FAERS Safety Report 24307285 (Version 1)
Quarter: 2024Q3

REPORT INFORMATION
  Report Type: Spontaneous
  Country: US (occurrence: None)
  Receive Date: 20240910
  Receipt Date: 20240910
  Transmission Date: 20241017
  Serious: Yes (Other)
  Sender: Public
  Company Number: None

PATIENT
  Age: 73 Year
  Sex: Female
  Weight: 92.25 kg

DRUGS (7)
  1. BELBUCA [Suspect]
     Active Substance: BUPRENORPHINE HYDROCHLORIDE
     Indication: Pain
     Dosage: FREQUENCY : EVERY 12 HOURS;?OTHER ROUTE : FILM IN CHEEK;?
     Route: 050
  2. Jardiace [Concomitant]
  3. ZOLOFT [Concomitant]
     Active Substance: SERTRALINE HYDROCHLORIDE
  4. CYMBALTA [Concomitant]
     Active Substance: DULOXETINE HYDROCHLORIDE
  5. SPIRONOLACTONE [Concomitant]
     Active Substance: SPIRONOLACTONE
  6. Rosyuvastatin [Concomitant]
  7. BIOTIN [Concomitant]
     Active Substance: BIOTIN

REACTIONS (2)
  - Dental caries [None]
  - Tooth fracture [None]

NARRATIVE: CASE EVENT DATE: 20240305
